FAERS Safety Report 19995781 (Version 1)
Quarter: 2021Q4

REPORT INFORMATION
  Report Type: Spontaneous
  Country: DE (occurrence: DE)
  Receive Date: 20211025
  Receipt Date: 20211025
  Transmission Date: 20220303
  Serious: Yes (Other)
  Sender: FDA-Public Use
  Company Number: DE-DCGMA-21188519

PATIENT
  Age: 64 Year
  Sex: Female
  Weight: 72 kg

DRUGS (1)
  1. ATORVASTATIN [Suspect]
     Active Substance: ATORVASTATIN
     Indication: Product used for unknown indication
     Dosage: 40 MILLIGRAM, QD (DAILY DOSE: 40 MG MILLGRAM(S) EVERY DAYS)

REACTIONS (6)
  - Deafness [Unknown]
  - Dyspnoea [Unknown]
  - Somnolence [Unknown]
  - Peripheral swelling [Unknown]
  - Paraesthesia [Unknown]
  - Swelling [Unknown]
